FAERS Safety Report 13989312 (Version 6)
Quarter: 2018Q1

REPORT INFORMATION
  Report Type: Spontaneous
  Country: GB (occurrence: GB)
  Receive Date: 20170920
  Receipt Date: 20180308
  Transmission Date: 20180508
  Serious: Yes (Death, Hospitalization)
  Sender: FDA-Public Use
  Company Number: GB-BAYER-2017-174237

PATIENT
  Age: 22 Year
  Sex: Male
  Weight: 67.3 kg

DRUGS (12)
  1. CREON [Concomitant]
     Active Substance: PANCRELIPASE AMYLASE\PANCRELIPASE LIPASE\PANCRELIPASE PROTEASE
  2. PROTEASE [Concomitant]
     Active Substance: PROTEASE
  3. OMEPRAZOLE. [Concomitant]
     Active Substance: OMEPRAZOLE
  4. PANCREATIN [Concomitant]
     Active Substance: PANCRELIPASE
  5. TAMOXIFEN [Concomitant]
     Active Substance: TAMOXIFEN
  6. LOPERAMIDE [Concomitant]
     Active Substance: LOPERAMIDE
  7. PARACETAMOL [Concomitant]
     Active Substance: ACETAMINOPHEN
  8. PERIDEX [Suspect]
     Active Substance: CHLORHEXIDINE GLUCONATE
     Indication: ORAL SURGERY
     Dosage: DAILY DOSE 10 ML
     Dates: start: 20170824, end: 20170824
  9. AMYLASE [Concomitant]
     Active Substance: AMYLASE
  10. SALICYLATE SODIUM [Concomitant]
     Active Substance: SODIUM SALICYLATE
  11. LIPASE [Concomitant]
     Active Substance: LIPASE
  12. SORAFENIB (RAF KINASE INHIBITOR) [Suspect]
     Active Substance: SORAFENIB
     Indication: HEPATOCELLULAR CARCINOMA
     Dosage: 400 MG, BID
     Route: 048
     Dates: start: 20170727, end: 20170811

REACTIONS (6)
  - Vomiting [Fatal]
  - Emotional distress [Fatal]
  - Agitation [Fatal]
  - Hyperammonaemic encephalopathy [Fatal]
  - Confusional state [Fatal]
  - Abdominal pain [Fatal]

NARRATIVE: CASE EVENT DATE: 20170812
